FAERS Safety Report 24382520 (Version 1)
Quarter: 2024Q4

REPORT INFORMATION
  Report Type: Spontaneous
  Country: US (occurrence: US)
  Receive Date: 20241001
  Receipt Date: 20241001
  Transmission Date: 20250115
  Serious: No
  Sender: SPARK THERAPEUTICS
  Company Number: US-SPARK THERAPEUTICS INC.-US-SPK-23-00152

PATIENT
  Age: 54 Year
  Sex: Male

DRUGS (2)
  1. LUXTURNA [Suspect]
     Active Substance: VORETIGENE NEPARVOVEC-RZYL
     Indication: Product used for unknown indication
     Dosage: UNK, LEFT EYE
     Dates: start: 20230413, end: 20230413
  2. LUXTURNA [Suspect]
     Active Substance: VORETIGENE NEPARVOVEC-RZYL
     Indication: Product used for unknown indication
     Dosage: LEFT EYE
     Dates: start: 20230413, end: 20230413

REACTIONS (1)
  - Cataract [Unknown]

NARRATIVE: CASE EVENT DATE: 20231129
